FAERS Safety Report 9776925 (Version 2)
Quarter: 2014Q2

REPORT INFORMATION
  Report Type: Report from Study
  Country: GB (occurrence: GB)
  Receive Date: 20131221
  Receipt Date: 20140404
  Transmission Date: 20141212
  Serious: Yes (Other)
  Sender: FDA-Public Use
  Company Number: GB-ASTRAZENECA-2013SE91127

PATIENT
  Age: 24670 Day
  Sex: Male
  Weight: 68.8 kg

DRUGS (4)
  1. VANDETANIB [Suspect]
     Indication: NON-SMALL CELL LUNG CANCER
     Route: 048
     Dates: start: 20131104, end: 20131202
  2. VANDETANIB [Suspect]
     Indication: NON-SMALL CELL LUNG CANCER
     Route: 048
  3. AZD6244 [Suspect]
     Indication: NON-SMALL CELL LUNG CANCER
     Route: 048
     Dates: start: 20131119, end: 20131202
  4. AZD6244 [Suspect]
     Indication: NON-SMALL CELL LUNG CANCER
     Route: 048

REACTIONS (1)
  - Detachment of retinal pigment epithelium [Recovered/Resolved]
